FAERS Safety Report 6469138-1 (Version None)
Quarter: 2009Q4

REPORT INFORMATION
  Report Type: 
  Country: None (occurrence: None)
  Receive Date: 20091203
  Receipt Date: 20071023
  Transmission Date: 20100525
  Serious: Yes (Death, Life-Threatening, Hospitalization)
  Sender: FDA-Public Use
  Company Number: FR-LLY01-FR200706002363

PATIENT
  Age: 77 Year
  Sex: Male

DRUGS (5)
  1. ZYPREXA [Suspect]
     Indication: PSYCHOTIC DISORDER
     Dosage: 10 MG, DAILY (1/D)
     Route: 048
  2. ARTANE [Concomitant]
     Indication: PARKINSONISM
     Dosage: 15 MG, DAILY (1/D)
     Route: 048
  3. MEPRONIZINE [Concomitant]
     Indication: PSYCHOTIC DISORDER
     Dosage: 1 D/F, DAILY (1/D)
     Route: 048
  4. NOZINAN [Concomitant]
     Indication: PSYCHOTIC DISORDER
     Dosage: 300 MG, DAILY (1/D)
     Route: 048
  5. XANAX [Concomitant]
     Indication: PSYCHOTIC DISORDER
     Dosage: UNK, UNKNOWN
     Route: 048

REACTIONS (2)
  - GASTROINTESTINAL NECROSIS [None]
  - INTESTINAL OBSTRUCTION [None]
